FAERS Safety Report 21173900 (Version 1)
Quarter: 2022Q3

REPORT INFORMATION
  Report Type: Spontaneous
  Country: US (occurrence: US)
  Receive Date: 20220804
  Receipt Date: 20220804
  Transmission Date: 20221027
  Serious: No
  Sender: FDA-Public Use
  Company Number: US-MYLANLABS-2022M1081352

PATIENT
  Sex: Female
  Weight: 89.36 kg

DRUGS (1)
  1. WIXELA INHUB [Suspect]
     Active Substance: FLUTICASONE PROPIONATE\SALMETEROL XINAFOATE
     Indication: Product used for unknown indication
     Dosage: UNK UNK, BID (250/50 MICROGRAM)
     Route: 055

REACTIONS (3)
  - Product dose omission issue [Unknown]
  - Device breakage [Unknown]
  - Device mechanical issue [Unknown]
